FAERS Safety Report 19890544 (Version 1)
Quarter: 2021Q3

REPORT INFORMATION
  Report Type: Spontaneous
  Country: US (occurrence: US)
  Receive Date: 20210928
  Receipt Date: 20210928
  Transmission Date: 20211014
  Serious: No
  Sender: FDA-Public Use
  Company Number: US-GLAXOSMITHKLINE-US2021198971

PATIENT
  Age: 45 Year
  Sex: Female

DRUGS (1)
  1. NUCALA [Suspect]
     Active Substance: MEPOLIZUMAB
     Indication: PRODUCT USED FOR UNKNOWN INDICATION
     Dosage: 100 MG, EVERY 28 DAYS
     Dates: start: 20210920

REACTIONS (3)
  - Headache [Recovered/Resolved]
  - Extra dose administered [Unknown]
  - Accidental underdose [Unknown]

NARRATIVE: CASE EVENT DATE: 20210920
